FAERS Safety Report 8446237-6 (Version None)
Quarter: 2012Q2

REPORT INFORMATION
  Report Type: 
  Country: None (occurrence: None)
  Receive Date: 20120618
  Receipt Date: 20120614
  Transmission Date: 20120825
  Serious: Yes (Death)
  Sender: FDA-Public Use
  Company Number: US-CELGENEUS-163-21880-12062087

PATIENT
  Sex: Male

DRUGS (4)
  1. CALCIUM + D [Concomitant]
     Route: 065
  2. FOLIC ACID [Concomitant]
     Dosage: 1 MILLIGRAM
     Route: 065
  3. LAMICTAL [Concomitant]
     Dosage: 150 MILLIGRAM
     Route: 065
  4. REVLIMID [Suspect]
     Indication: MULTIPLE MYELOMA
     Dosage: 5 MILLIGRAM
     Route: 048
     Dates: start: 20110311

REACTIONS (1)
  - DEATH [None]
